FAERS Safety Report 17804584 (Version 1)
Quarter: 2020Q2

REPORT INFORMATION
  Report Type: Spontaneous
  Country: DE (occurrence: DE)
  Receive Date: 20200519
  Receipt Date: 20200519
  Transmission Date: 20200714
  Serious: Yes (Other)
  Sender: FDA-Public Use
  Company Number: NVSC2020DE132001

PATIENT
  Sex: Male
  Weight: 2.4 kg

DRUGS (6)
  1. METOCLOPRAMIDE. [Suspect]
     Active Substance: METOCLOPRAMIDE
     Indication: FOETAL EXPOSURE DURING PREGNANCY
     Dosage: MATERNAL DOSE: UNK, AS NEEDED
     Route: 064
  2. ACETAMINOPHEN (PARACETAMOL) [Suspect]
     Active Substance: ACETAMINOPHEN
     Indication: FOETAL EXPOSURE DURING PREGNANCY
     Dosage: MATERNAL DOSE: UNK, AS NEEDED
     Route: 064
  3. BISACODYL. [Suspect]
     Active Substance: BISACODYL
     Indication: FOETAL EXPOSURE DURING PREGNANCY
     Dosage: MATERNAL DOSE: UNK, AS NEEDED
     Route: 064
  4. DACTINOMYCIN [Suspect]
     Active Substance: DACTINOMYCIN
     Indication: FOETAL EXPOSURE DURING PREGNANCY
     Dosage: 45 UG/KG, CYCLIC (MAXIMUM 2 MG, EVERY 3 WEEKS FROM 22 WEEKS GESTATION)
     Route: 064
  5. GRANISETRON [Suspect]
     Active Substance: GRANISETRON
     Indication: FOETAL EXPOSURE DURING PREGNANCY
     Dosage: MATERNAL DOSE: UNK, AS NEEDED
     Route: 064
  6. VINCRISTINE [Suspect]
     Active Substance: VINCRISTINE
     Indication: FOETAL EXPOSURE DURING PREGNANCY
     Dosage: 1.5 MG/M2, WEEKLY (MAXIMUM 2 MG; 22 WEEKS GESTATION)
     Route: 064

REACTIONS (3)
  - Anaemia [Unknown]
  - Maternal exposure during pregnancy [Unknown]
  - Premature baby [Unknown]
